FAERS Safety Report 24017352 (Version 1)
Quarter: 2024Q2

REPORT INFORMATION
  Report Type: Report from Study
  Country: KR (occurrence: KR)
  Receive Date: 20240627
  Receipt Date: 20240627
  Transmission Date: 20240716
  Serious: Yes (Hospitalization)
  Sender: FDA-Public Use
  Company Number: KR-JNJFOC-20240657133

PATIENT
  Sex: Male
  Weight: 61 kg

DRUGS (31)
  1. ZYTIGA [Suspect]
     Active Substance: ABIRATERONE ACETATE
     Indication: Prostate cancer metastatic
     Route: 048
     Dates: start: 20220416, end: 20231018
  2. ZYTIGA [Suspect]
     Active Substance: ABIRATERONE ACETATE
     Route: 048
     Dates: start: 20221222
  3. ZYTIGA [Suspect]
     Active Substance: ABIRATERONE ACETATE
     Route: 048
     Dates: start: 20220808, end: 20220908
  4. ZYTIGA [Suspect]
     Active Substance: ABIRATERONE ACETATE
     Route: 048
     Dates: start: 20230330, end: 20230510
  5. PREDNISONE [Suspect]
     Active Substance: PREDNISONE
     Indication: Prostate cancer metastatic
     Route: 048
     Dates: start: 20220415, end: 20231023
  6. FLUZOPARIB [Suspect]
     Active Substance: FLUZOPARIB
     Indication: Prostate cancer metastatic
     Route: 048
     Dates: start: 20220415, end: 20231024
  7. URSODIOL [Concomitant]
     Active Substance: URSODIOL
     Indication: Hepatic steatosis
     Route: 048
     Dates: start: 2010
  8. PROPIVERINE [Concomitant]
     Active Substance: PROPIVERINE
     Indication: Nocturia
     Route: 048
     Dates: start: 20160822
  9. FEROBA YOU SR [Concomitant]
     Indication: Anaemia
     Dosage: 2 TABLET
     Route: 048
     Dates: start: 20230301
  10. FOLIC ACID [Concomitant]
     Active Substance: FOLIC ACID
     Indication: Anaemia
     Route: 048
     Dates: start: 20230301
  11. M-COBAL [Concomitant]
     Indication: Anaemia
     Route: 048
     Dates: start: 20230301
  12. DONEPEZIL ONE [Concomitant]
     Indication: Dementia
     Route: 048
     Dates: start: 20230228
  13. DUPHALAC [Concomitant]
     Active Substance: LACTULOSE
     Indication: Constipation
     Route: 048
     Dates: start: 20230303
  14. PANUS-F [Concomitant]
     Indication: Diabetes mellitus
     Route: 048
     Dates: start: 20230309
  15. ROSU V [Concomitant]
     Indication: Hyperlipidaemia
     Dosage: 1 TABLET
     Route: 048
     Dates: start: 20230309
  16. ZOLPIDEM TARTRATE [Concomitant]
     Active Substance: ZOLPIDEM TARTRATE
     Indication: Insomnia
     Route: 048
     Dates: start: 20230204, end: 20230204
  17. ZOLPIDEM TARTRATE [Concomitant]
     Active Substance: ZOLPIDEM TARTRATE
     Route: 048
     Dates: start: 20230309
  18. RABEPRAZOLE SODIUM [Concomitant]
     Active Substance: RABEPRAZOLE SODIUM
     Indication: Gastrointestinal disorder therapy
     Route: 048
     Dates: start: 20230316
  19. ARTNOLCET [Concomitant]
     Indication: Non-cardiac chest pain
     Route: 048
     Dates: start: 20230821
  20. ARTNOLCET [Concomitant]
     Indication: Back pain
     Route: 048
     Dates: start: 20230316, end: 202304
  21. VITABELLA [Concomitant]
     Indication: Osteoporosis prophylaxis
     Route: 030
     Dates: start: 20230329
  22. NORZYME [Concomitant]
     Indication: Dyspepsia
     Dosage: 1 CAP
     Route: 048
     Dates: start: 20230313, end: 20230411
  23. NORZYME [Concomitant]
     Dosage: 1 CAP
     Route: 048
     Dates: start: 20230412
  24. MAGNESIUM HYDROXIDE [Concomitant]
     Active Substance: MAGNESIUM HYDROXIDE
     Indication: Constipation prophylaxis
     Route: 048
     Dates: start: 20230125, end: 20230125
  25. MAGNESIUM HYDROXIDE [Concomitant]
     Active Substance: MAGNESIUM HYDROXIDE
     Route: 048
     Dates: start: 20230203, end: 20230206
  26. MAGNESIUM HYDROXIDE [Concomitant]
     Active Substance: MAGNESIUM HYDROXIDE
     Route: 048
     Dates: start: 20230219, end: 20230315
  27. MAGNESIUM HYDROXIDE [Concomitant]
     Active Substance: MAGNESIUM HYDROXIDE
     Dosage: 1 TAB
     Route: 048
     Dates: start: 20230505
  28. CHOLINE [Concomitant]
     Active Substance: CHOLINE
     Indication: Dementia
     Route: 048
     Dates: start: 20230502
  29. TRANOL [TRAMADOL HYDROCHLORIDE] [Concomitant]
     Indication: Non-cardiac chest pain
     Route: 030
     Dates: start: 20230821
  30. BACLOFEN [Concomitant]
     Active Substance: BACLOFEN
     Indication: Non-cardiac chest pain
     Route: 048
     Dates: start: 20230821
  31. BACLOFEN [Concomitant]
     Active Substance: BACLOFEN
     Indication: Back pain
     Route: 048
     Dates: start: 20230316, end: 202308

REACTIONS (1)
  - Back pain [Recovered/Resolved]

NARRATIVE: CASE EVENT DATE: 20230123
